FAERS Safety Report 18298299 (Version 3)
Quarter: 2020Q4

REPORT INFORMATION
  Report Type: Spontaneous
  Country: CA (occurrence: CA)
  Receive Date: 20200923
  Receipt Date: 20201028
  Transmission Date: 20210113
  Serious: Yes (Other)
  Sender: FDA-Public Use
  Company Number: CA-CELLTRION INC.-2019CA024757

PATIENT

DRUGS (8)
  1. INFLECTRA [Suspect]
     Active Substance: INFLIXIMAB-DYYB
     Dosage: 200 MG, EVERY 6 WEEKS
     Route: 042
     Dates: start: 20200625, end: 20200625
  2. INFLECTRA [Suspect]
     Active Substance: INFLIXIMAB-DYYB
     Dosage: 200 MG, EVERY 6 WEEKS
     Route: 042
     Dates: start: 20200407, end: 20200407
  3. INFLECTRA [Suspect]
     Active Substance: INFLIXIMAB-DYYB
     Dosage: 200 MG, EVERY 6 WEEKS
     Route: 042
     Dates: start: 20200114, end: 20200114
  4. INFLECTRA [Suspect]
     Active Substance: INFLIXIMAB-DYYB
     Dosage: 200 MG, EVERY 6 WEEKS
     Route: 042
     Dates: start: 20200407, end: 20200407
  5. INFLECTRA [Suspect]
     Active Substance: INFLIXIMAB-DYYB
     Dosage: 200 MG, EVERY 6 WEEKS
     Route: 042
     Dates: start: 20191128, end: 20191128
  6. INFLECTRA [Suspect]
     Active Substance: INFLIXIMAB-DYYB
     Dosage: 200 MG, EVERY 6 WEEKS
     Route: 042
     Dates: start: 20200519, end: 20200519
  7. INFLECTRA [Suspect]
     Active Substance: INFLIXIMAB-DYYB
     Indication: ANKYLOSING SPONDYLITIS
     Dosage: 200 MG, EVERY 6 WEEKS
     Route: 042
     Dates: start: 20191018, end: 20191018
  8. INFLECTRA [Suspect]
     Active Substance: INFLIXIMAB-DYYB
     Dosage: 200 MG, EVERY 6 WEEKS
     Route: 042
     Dates: start: 20200806

REACTIONS (26)
  - Sinus congestion [Not Recovered/Not Resolved]
  - Headache [Not Recovered/Not Resolved]
  - Pollakiuria [Unknown]
  - Nasal discomfort [Recovering/Resolving]
  - Synovial cyst [Recovering/Resolving]
  - Rhinorrhoea [Not Recovered/Not Resolved]
  - Menstruation irregular [Unknown]
  - Oropharyngeal pain [Recovering/Resolving]
  - Heart rate decreased [Unknown]
  - Asthenia [Not Recovered/Not Resolved]
  - Pelvic pain [Unknown]
  - Oral herpes [Unknown]
  - Ear pain [Recovering/Resolving]
  - Cough [Recovering/Resolving]
  - Pain in extremity [Not Recovered/Not Resolved]
  - Dizziness [Not Recovered/Not Resolved]
  - Back injury [Unknown]
  - Upper-airway cough syndrome [Not Recovered/Not Resolved]
  - Mobility decreased [Unknown]
  - Staphylococcal infection [Unknown]
  - Therapeutic response shortened [Unknown]
  - Tooth fracture [Unknown]
  - Arthritis [Recovered/Resolved]
  - Heart rate irregular [Unknown]
  - Off label use [Unknown]
  - Inappropriate schedule of product administration [Unknown]

NARRATIVE: CASE EVENT DATE: 20191231
